FAERS Safety Report 7718175-5 (Version None)
Quarter: 2011Q3

REPORT INFORMATION
  Report Type: 
  Country: None (occurrence: None)
  Receive Date: 20110830
  Receipt Date: 20110120
  Transmission Date: 20111222
  Serious: Yes (Death)
  Sender: FDA-Public Use
  Company Number: FR-ROCHE-754574

PATIENT
  Sex: Female

DRUGS (3)
  1. OXALIPLATIN [Suspect]
     Dosage: FREQUENCY: PER CYCLE.
     Route: 042
     Dates: start: 20101115, end: 20101227
  2. AVASTIN [Suspect]
     Dosage: DRUG: AVASTIN 25 MG/ML INJECTABLE SOLUTION. FREQUENCY: PER CYCLE.
     Route: 042
     Dates: start: 20101115, end: 20101227
  3. FLUOROURACIL [Suspect]
     Dosage: FREQUENCY: PER CYCLE.
     Route: 042
     Dates: start: 20101115, end: 20101227

REACTIONS (5)
  - NAUSEA [None]
  - DIARRHOEA [None]
  - VOMITING [None]
  - GENERAL PHYSICAL HEALTH DETERIORATION [None]
  - HYPOTENSION [None]
